FAERS Safety Report 8001291-0 (Version None)
Quarter: 2011Q4

REPORT INFORMATION
  Report Type: 
  Country: None (occurrence: None)
  Receive Date: 20111219
  Receipt Date: 20111208
  Transmission Date: 20120403
  Serious: Yes (Other)
  Sender: FDA-Public Use
  Company Number: 2011SP053739

PATIENT
  Age: 53 Year
  Sex: Female

DRUGS (1)
  1. DULERA ORAL INHALATION [Suspect]
     Indication: ASTHMA
     Dosage: BID;INH
     Route: 055
     Dates: start: 20110901, end: 20111113

REACTIONS (1)
  - HERPES VIRUS INFECTION [None]
